FAERS Safety Report 4997916-4 (Version None)
Quarter: 2006Q2

REPORT INFORMATION
  Report Type: 
  Country: None (occurrence: None)
  Receive Date: 20060508
  Receipt Date: 20060426
  Transmission Date: 20061013
  Serious: Yes (Hospitalization)
  Sender: FDA-Public Use
  Company Number: 2006057321

PATIENT
  Age: 51 Year
  Sex: Female
  Weight: 106.5953 kg

DRUGS (7)
  1. CELEBREX [Suspect]
     Indication: ARTHRITIS
     Dosage: SEE IMAGE
     Dates: start: 20000901, end: 20041201
  2. CELEBREX [Suspect]
     Indication: ARTHRITIS
     Dosage: SEE IMAGE
     Dates: start: 20000901, end: 20041201
  3. ACETYLSALICYLIC ACID SRT [Concomitant]
  4. PLAVIX [Concomitant]
  5. IBUPROFEN [Concomitant]
  6. CODEINE [Concomitant]
  7. VIOXX [Concomitant]

REACTIONS (6)
  - BACK DISORDER [None]
  - CARDIAC DISORDER [None]
  - DEPRESSION [None]
  - ILL-DEFINED DISORDER [None]
  - MYOCARDIAL INFARCTION [None]
  - PNEUMONIA [None]
